FAERS Safety Report 11230841 (Version 1)
Quarter: 2015Q3

REPORT INFORMATION
  Report Type: Spontaneous
  Country: TR (occurrence: TR)
  Receive Date: 20150701
  Receipt Date: 20150701
  Transmission Date: 20151125
  Serious: Yes (Other)
  Sender: FDA-Public Use
  Company Number: TR-GUERBET LLC-1040292

PATIENT
  Age: 47 Year
  Sex: Female

DRUGS (1)
  1. DOTAREM [Suspect]
     Active Substance: GADOTERATE MEGLUMINE
     Indication: NUCLEAR MAGNETIC RESONANCE IMAGING
     Dates: start: 20150618, end: 20150618

REACTIONS (2)
  - Injection site extravasation [Recovered/Resolved]
  - Lymphoedema [Recovered/Resolved]

NARRATIVE: CASE EVENT DATE: 20150618
